FAERS Safety Report 6859314-8 (Version None)
Quarter: 2010Q3

REPORT INFORMATION
  Report Type: 
  Country: None (occurrence: None)
  Receive Date: 20100719
  Receipt Date: 20080224
  Transmission Date: 20110219
  Serious: No
  Sender: FDA-Public Use
  Company Number: US-PFIZER INC-2008017911

PATIENT
  Sex: Female
  Weight: 54.545 kg

DRUGS (5)
  1. CHANTIX [Suspect]
     Indication: SMOKING CESSATION THERAPY
     Dates: start: 20080201, end: 20080223
  2. HYDROCHLOROTHIAZIDE [Concomitant]
  3. CITALOPRAM HYDROBROMIDE [Concomitant]
  4. ZYRTEC [Concomitant]
  5. ACETYLSALICYLIC ACID [Concomitant]

REACTIONS (2)
  - DECREASED APPETITE [None]
  - NAUSEA [None]
